FAERS Safety Report 16946619 (Version 2)
Quarter: 2019Q4

REPORT INFORMATION
  Report Type: Report from Study
  Country: US (occurrence: US)
  Receive Date: 20191022
  Receipt Date: 20191107
  Transmission Date: 20200122
  Serious: Yes (Hospitalization, Other)
  Sender: FDA-Public Use
  Company Number: US-GLAXOSMITHKLINE-US2019AMR187801

PATIENT
  Age: 63 Year
  Sex: Female
  Weight: 70.5 kg

DRUGS (16)
  1. ASPIRIN. [Concomitant]
     Active Substance: ASPIRIN
     Indication: RHEUMATOID ARTHRITIS
     Dosage: UNK
     Dates: start: 1997
  2. LEVOTHYROXINE SODIUM. [Concomitant]
     Active Substance: LEVOTHYROXINE SODIUM
     Indication: RHEUMATOID ARTHRITIS
     Dosage: UNK
     Dates: start: 20170522
  3. ENBREL [Suspect]
     Active Substance: ETANERCEPT
     Dosage: 50 MG, (QWK) UNK
     Route: 058
     Dates: end: 201804
  4. BIOTIN [Concomitant]
     Active Substance: BIOTIN
     Indication: RHEUMATOID ARTHRITIS
     Dosage: UNK
  5. ALENDRONATE [Concomitant]
     Active Substance: ALENDRONATE SODIUM
     Indication: RHEUMATOID ARTHRITIS
     Dosage: UNK
     Dates: start: 20180716
  6. MAGNESIUM [Concomitant]
     Active Substance: MAGNESIUM
     Indication: RHEUMATOID ARTHRITIS
     Dosage: UNK
     Dates: start: 1997
  7. EPIPEN (RACEPINEPHRINE) [Concomitant]
     Indication: RHEUMATOID ARTHRITIS
     Dosage: UNK
  8. OMEGA-3-ACID ETHYL ESTERS. [Suspect]
     Active Substance: OMEGA-3-ACID ETHYL ESTERS
     Indication: HYPERLIPIDAEMIA
     Dosage: UNK
     Route: 065
  9. ENBREL [Suspect]
     Active Substance: ETANERCEPT
     Indication: RHEUMATOID ARTHRITIS
     Dosage: 50 MG, (QWK) UNK
     Route: 058
     Dates: start: 1997
  10. ENBREL [Suspect]
     Active Substance: ETANERCEPT
     Dosage: 50 MG, (QWK) UNK
     Route: 058
     Dates: end: 2005
  11. ENBREL [Suspect]
     Active Substance: ETANERCEPT
     Dosage: 50 MG, (QWK) UNK
     Route: 058
     Dates: start: 20180416
  12. VITAMIN D3 [Concomitant]
     Active Substance: CHOLECALCIFEROL
     Indication: RHEUMATOID ARTHRITIS
     Dosage: UNK
     Dates: start: 20170725
  13. CALCIUM [Concomitant]
     Active Substance: CALCIUM
     Indication: RHEUMATOID ARTHRITIS
     Dosage: UNK
  14. ATORVASTATIN [Concomitant]
     Active Substance: ATORVASTATIN
     Indication: RHEUMATOID ARTHRITIS
     Dosage: UNK
  15. ENBREL [Suspect]
     Active Substance: ETANERCEPT
     Dosage: 50 MG, (QWK) UNK
     Route: 058
     Dates: start: 20180416
  16. LISINOPRIL. [Concomitant]
     Active Substance: LISINOPRIL
     Indication: RHEUMATOID ARTHRITIS
     Dosage: UNK
     Dates: start: 1997

REACTIONS (51)
  - Pain [Unknown]
  - Hypertension [Unknown]
  - Obesity [Unknown]
  - Hyperkeratosis [Recovering/Resolving]
  - Skin laceration [Unknown]
  - Dizziness [Unknown]
  - Hyperlipidaemia [Unknown]
  - Tooth loss [Unknown]
  - Hypoacusis [Unknown]
  - Cardiac disorder [Unknown]
  - Localised infection [Unknown]
  - Myocardial infarction [Unknown]
  - Macular degeneration [Recovering/Resolving]
  - Chest pain [Unknown]
  - Joint swelling [Unknown]
  - Bone disorder [Unknown]
  - Head injury [Unknown]
  - Fatigue [Unknown]
  - Muscle spasms [Unknown]
  - Pain in jaw [Unknown]
  - Osteoporosis [Unknown]
  - Deafness [Unknown]
  - Dyspnoea [Unknown]
  - Alopecia [Unknown]
  - Bone loss [Unknown]
  - Hernia [Unknown]
  - Deafness neurosensory [Unknown]
  - Hypothyroidism [Unknown]
  - Tooth disorder [Unknown]
  - Actinic keratosis [Unknown]
  - Fall [Unknown]
  - Glucose tolerance impaired [Unknown]
  - Vitamin D increased [Unknown]
  - Facial pain [Unknown]
  - Gingival disorder [Unknown]
  - Body height decreased [Unknown]
  - Wrong technique in product usage process [Unknown]
  - Rheumatoid arthritis [Unknown]
  - Pulmonary fibrosis [Unknown]
  - Back pain [Unknown]
  - Tachycardia [Unknown]
  - Coronary artery disease [Unknown]
  - Headache [Unknown]
  - Malaise [Unknown]
  - Accidental exposure to product [Unknown]
  - Feeling abnormal [Unknown]
  - Nasopharyngitis [Unknown]
  - Injection site haemorrhage [Unknown]
  - Eustachian tube obstruction [Unknown]
  - Sciatica [Unknown]
  - Therapeutic product effect decreased [Unknown]

NARRATIVE: CASE EVENT DATE: 20091002
